FAERS Safety Report 26194514 (Version 2)
Quarter: 2025Q4

REPORT INFORMATION
  Report Type: Report from Study
  Country: US (occurrence: US)
  Receive Date: 20251224
  Receipt Date: 20251230
  Transmission Date: 20260119
  Serious: Yes (Hospitalization, Other)
  Sender: BAYER HEALTHCARE PHARMACEUTICALS INC.
  Company Number: US-BAYER-2025A160583

PATIENT
  Age: 38 Year
  Sex: Female
  Weight: 80.272 kg

DRUGS (17)
  1. ADEMPAS [Suspect]
     Active Substance: RIOCIGUAT
     Indication: Pulmonary arterial hypertension
     Dosage: UNK
     Dates: start: 20251126
  2. ADEMPAS [Suspect]
     Active Substance: RIOCIGUAT
     Indication: Pulmonary hypertension
     Dosage: 1 MG, TID
     Route: 048
  3. ADEMPAS [Suspect]
     Active Substance: RIOCIGUAT
     Indication: Pulmonary hypertension
     Dosage: UNK UNK, TID
     Dates: start: 202511
  4. REMODULIN [Concomitant]
     Active Substance: TREPROSTINIL
  5. SODIUM CHLORIDE [Concomitant]
     Active Substance: SODIUM CHLORIDE
  6. OPSUMIT [Concomitant]
     Active Substance: MACITENTAN
  7. MAGNESIUM OXIDE [Concomitant]
     Active Substance: MAGNESIUM OXIDE
  8. KETAMINE HYDROCHLORIDE [Concomitant]
     Active Substance: KETAMINE HYDROCHLORIDE
  9. LECITHIN [Concomitant]
     Active Substance: LECITHIN
  10. CLONIDINE [Concomitant]
     Active Substance: CLONIDINE
  11. KETOPROFEN [Concomitant]
     Active Substance: KETOPROFEN
  12. LIDOCAINE [Concomitant]
     Active Substance: LIDOCAINE
  13. ENOXAPARIN SODIUM [Concomitant]
     Active Substance: ENOXAPARIN SODIUM
  14. DIGOXIN [Concomitant]
     Active Substance: DIGOXIN
  15. AMITRIPTYLINE HYDROCHLORIDE [Concomitant]
     Active Substance: AMITRIPTYLINE HYDROCHLORIDE
  16. GABAPENTIN [Concomitant]
     Active Substance: GABAPENTIN
  17. POLOXAMER [Concomitant]
     Active Substance: POLOXAMER

REACTIONS (4)
  - Haemoptysis [None]
  - Loss of consciousness [None]
  - Hospitalisation [Not Recovered/Not Resolved]
  - Pulmonary endarterectomy [Recovering/Resolving]

NARRATIVE: CASE EVENT DATE: 20251203
